FAERS Safety Report 5013934-4 (Version None)
Quarter: 2006Q2

REPORT INFORMATION
  Report Type: 
  Country: None (occurrence: None)
  Receive Date: 20060526
  Receipt Date: 20060526
  Transmission Date: 20061013
  Serious: Yes (Other)
  Sender: FDA-Public Use
  Company Number: None

PATIENT
  Sex: Female
  Weight: 129.7287 kg

DRUGS (1)
  1. EZETIMIBE      10 MG     MERCK [Suspect]
     Indication: BLOOD CHOLESTEROL INCREASED

REACTIONS (7)
  - ASTHENIA [None]
  - FATIGUE [None]
  - GAIT DISTURBANCE [None]
  - HYPERSOMNIA [None]
  - MUSCLE SPASMS [None]
  - MUSCLE TWITCHING [None]
  - MYALGIA [None]
